FAERS Safety Report 21567803 (Version 1)
Quarter: 2022Q4

REPORT INFORMATION
  Report Type: Spontaneous
  Country: CA (occurrence: CA)
  Receive Date: 20221108
  Receipt Date: 20221108
  Transmission Date: 20230113
  Serious: Yes (Other)
  Sender: FDA-Public Use
  Company Number: CA-BAXTER-2022BAX023465

PATIENT
  Age: 60 Year
  Sex: Male

DRUGS (2)
  1. MANNITOL [Suspect]
     Active Substance: MANNITOL
     Indication: Product used for unknown indication
     Route: 065
  2. RINVOQ [Suspect]
     Active Substance: UPADACITINIB
     Indication: Psoriatic arthropathy
     Dosage: 15 MILLIGRAM, ONE EVERY ONE DAY (DOSAGE FORM: TABLET (EXTENDED-RELEASE))
     Route: 048

REACTIONS (5)
  - Abdominal distension [Unknown]
  - Gastric haemorrhage [Unknown]
  - Muscle spasms [Unknown]
  - Drug hypersensitivity [Unknown]
  - Malaise [Unknown]
